FAERS Safety Report 7632678-3 (Version None)
Quarter: 2011Q3

REPORT INFORMATION
  Report Type: 
  Country: None (occurrence: None)
  Receive Date: 20110725
  Receipt Date: 20101124
  Transmission Date: 20111222
  Serious: No
  Sender: FDA-Public Use
  Company Number: US-BRISTOL-MYERS SQUIBB COMPANY-15405509

PATIENT
  Age: 71 Year
  Sex: Female
  Weight: 69 kg

DRUGS (2)
  1. CARDIZEM CD [Concomitant]
  2. WARFARIN SODIUM [Suspect]
     Dates: start: 20100101

REACTIONS (1)
  - HEPATIC ENZYME INCREASED [None]
